FAERS Safety Report 19926766 (Version 1)
Quarter: 2021Q4

REPORT INFORMATION
  Report Type: Spontaneous
  Country: HN (occurrence: HN)
  Receive Date: 20211006
  Receipt Date: 20211006
  Transmission Date: 20220303
  Serious: Yes (Hospitalization)
  Sender: FDA-Public Use
  Company Number: HN-NOVARTISPH-NVSC2021HN223550

PATIENT
  Sex: Male

DRUGS (1)
  1. GLIVEC [Suspect]
     Active Substance: IMATINIB MESYLATE
     Indication: Chronic myeloid leukaemia
     Dosage: 400 MG, BID (800 MG (2 X 400 MG)
     Route: 065

REACTIONS (4)
  - Road traffic accident [Unknown]
  - Wrist fracture [Unknown]
  - Mouth injury [Unknown]
  - Tooth injury [Unknown]
